FAERS Safety Report 10191340 (Version 1)
Quarter: 2014Q2

REPORT INFORMATION
  Report Type: Spontaneous
  Country: US (occurrence: None)
  Receive Date: 20140522
  Receipt Date: 20140522
  Transmission Date: 20141212
  Serious: Yes (Other)
  Sender: FDA-Public Use
  Company Number: None

PATIENT
  Age: 54 Year
  Sex: Female
  Weight: 60.78 kg

DRUGS (1)
  1. PORCINE THYROID [Suspect]
     Indication: HYPOTHYROIDISM
     Route: 048
     Dates: start: 20100715, end: 20140428

REACTIONS (7)
  - Anxiety [None]
  - Irritability [None]
  - Weight increased [None]
  - Tinnitus [None]
  - Blood pressure increased [None]
  - Product quality issue [None]
  - Drug effect increased [None]
